FAERS Safety Report 6994304-6 (Version None)
Quarter: 2010Q3

REPORT INFORMATION
  Report Type: 
  Country: None (occurrence: None)
  Receive Date: 20100917
  Receipt Date: 20100907
  Transmission Date: 20110219
  Serious: Yes (Other)
  Sender: FDA-Public Use
  Company Number: US-ABBOTT-10P-163-0668981-00

PATIENT
  Sex: Female

DRUGS (8)
  1. LUPRON DEPOT [Suspect]
     Indication: PRODUCT USED FOR UNKNOWN INDICATION
     Dates: start: 20090101, end: 20090101
  2. TAMOX [Concomitant]
     Indication: PRODUCT USED FOR UNKNOWN INDICATION
  3. FEMARA [Concomitant]
     Indication: PRODUCT USED FOR UNKNOWN INDICATION
  4. ZOMETA [Concomitant]
     Indication: BONE DENSITY DECREASED
  5. ZANTAC [Concomitant]
     Indication: DYSPEPSIA
  6. AC+TAXOL [Concomitant]
     Indication: CHEMOTHERAPY
     Dosage: 4 CYCLES
     Dates: start: 20090101, end: 20090101
  7. EFFEXOR [Concomitant]
     Indication: HOT FLUSH
  8. DECADRON [Concomitant]
     Indication: PROPHYLAXIS OF NAUSEA AND VOMITING

REACTIONS (3)
  - HOT FLUSH [None]
  - HYSTERECTOMY [None]
  - NAUSEA [None]
